FAERS Safety Report 24461556 (Version 1)
Quarter: 2024Q4

REPORT INFORMATION
  Report Type: Report from Study
  Country: US (occurrence: US)
  Receive Date: 20241018
  Receipt Date: 20241018
  Transmission Date: 20250114
  Serious: No
  Sender: ROCHE
  Company Number: US-ROCHE-3564852

PATIENT
  Age: 45 Year
  Sex: Male
  Weight: 91.17 kg

DRUGS (2)
  1. RITUXAN [Suspect]
     Active Substance: RITUXIMAB
     Indication: Relapsing multiple sclerosis
     Route: 041
     Dates: start: 2022
  2. RITUXAN [Suspect]
     Active Substance: RITUXIMAB
     Dosage: DATE OF SERVICE: 28/FEB/2024
     Route: 042

REACTIONS (6)
  - Dysgraphia [Not Recovered/Not Resolved]
  - Off label use [Unknown]
  - Gait disturbance [Not Recovered/Not Resolved]
  - Muscular weakness [Not Recovered/Not Resolved]
  - Muscle atrophy [Not Recovered/Not Resolved]
  - Fall [Unknown]
